FAERS Safety Report 26071365 (Version 1)
Quarter: 2025Q4

REPORT INFORMATION
  Report Type: Spontaneous
  Country: US (occurrence: US)
  Receive Date: 20251120
  Receipt Date: 20251120
  Transmission Date: 20260119
  Serious: No
  Sender: SEPTODONT
  Company Number: US-SEPTODONT-2025019831

PATIENT
  Age: 18 Year
  Sex: Male

DRUGS (3)
  1. EPINEPHRINE BITARTRATE\LIDOCAINE HYDROCHLORIDE [Suspect]
     Active Substance: EPINEPHRINE BITARTRATE\LIDOCAINE HYDROCHLORIDE
     Indication: Dental local anaesthesia
     Dosage: 4 CARPULES (2 EACH SIDE) + 6 CARPULES INTO THE LEFT IA BLOCK.
     Route: 004
     Dates: start: 20250717, end: 20250717
  2. 27Ga Long Needle [Concomitant]
  3. Standard Syringe [Concomitant]

REACTIONS (5)
  - Drug effect less than expected [Unknown]
  - Injection site swelling [Unknown]
  - Procedural pain [Unknown]
  - Crying [Unknown]
  - Feeling abnormal [Unknown]

NARRATIVE: CASE EVENT DATE: 20250717
